FAERS Safety Report 9053766 (Version 2)
Quarter: 2013Q1

REPORT INFORMATION
  Report Type: Spontaneous
  Country: US (occurrence: US)
  Receive Date: 20130207
  Receipt Date: 20130320
  Transmission Date: 20140127
  Serious: No
  Sender: FDA-Public Use
  Company Number: US-PFIZER INC-2013051381

PATIENT
  Age: 64 Year
  Sex: Female
  Weight: 48.07 kg

DRUGS (6)
  1. NEURONTIN [Suspect]
     Indication: NEURALGIA
     Dosage: 300 MG, 3X/DAY
     Route: 048
     Dates: start: 20121101
  2. METFORMIN [Concomitant]
     Dosage: UNK
  3. AMITRIPTYLINE [Concomitant]
     Dosage: UNK
  4. FLEXERIL [Concomitant]
     Dosage: UNK, AS NEEDED
  5. TRAMADOL [Concomitant]
     Indication: PAIN
     Dosage: UNK, AS NEEDED
  6. INSULIN [Concomitant]
     Dosage: UNK

REACTIONS (3)
  - Vomiting [Unknown]
  - Drug ineffective [Unknown]
  - Pain [Not Recovered/Not Resolved]
